FAERS Safety Report 13890153 (Version 2)
Quarter: 2017Q3

REPORT INFORMATION
  Report Type: Spontaneous
  Country: BE (occurrence: BE)
  Receive Date: 20170822
  Receipt Date: 20170915
  Transmission Date: 20171127
  Serious: Yes (Hospitalization, Other)
  Sender: FDA-Public Use
  Company Number: BE-APOTEX-2017AP017143

PATIENT
  Age: 69 Year
  Sex: Female

DRUGS (2)
  1. PARACETABS FILMOMHULDE TABLETTEN [Suspect]
     Active Substance: ACETAMINOPHEN
     Indication: PRODUCT USED FOR UNKNOWN INDICATION
     Dosage: 4 G, QD
     Route: 065
  2. FOSFOMYCIN [Suspect]
     Active Substance: FOSFOMYCIN
     Indication: ANTIBIOTIC THERAPY
     Dosage: 3 G, Q.WK.
     Route: 065

REACTIONS (3)
  - Drug level increased [Unknown]
  - Metabolic acidosis [Recovered/Resolved]
  - Poisoning [Unknown]
